FAERS Safety Report 19725901 (Version 1)
Quarter: 2021Q3

REPORT INFORMATION
  Report Type: Spontaneous
  Country: US (occurrence: US)
  Receive Date: 20210819
  Receipt Date: 20210819
  Transmission Date: 20211014
  Serious: Yes (Life-Threatening, Hospitalization, Disabling, Other)
  Sender: FDA-Public Use
  Company Number: None

PATIENT
  Age: 51 Year
  Sex: Female
  Weight: 103.5 kg

DRUGS (5)
  1. ONDANSETRON [Concomitant]
     Active Substance: ONDANSETRON
  2. CIPRO [Suspect]
     Active Substance: CIPROFLOXACIN HYDROCHLORIDE
     Indication: INFECTION
     Route: 048
     Dates: start: 20210811, end: 20210813
  3. FAMOTIDINE. [Concomitant]
     Active Substance: FAMOTIDINE
  4. POTASSIUM [Concomitant]
     Active Substance: POTASSIUM
  5. MULTI?VITAMINS [Concomitant]

REACTIONS (23)
  - Confusional state [None]
  - Cranial nerve disorder [None]
  - Blood lactic acid increased [None]
  - Asthenia [None]
  - Anxiety [None]
  - Memory impairment [None]
  - Blood creatinine decreased [None]
  - Amnesia [None]
  - Diplopia [None]
  - White blood cell count increased [None]
  - Blood potassium decreased [None]
  - Strabismus [None]
  - Visual field defect [None]
  - Eye movement disorder [None]
  - VIth nerve paralysis [None]
  - Disorientation [None]
  - Fall [None]
  - Paraesthesia [None]
  - Therapy interrupted [None]
  - Tachycardia [None]
  - Protein total decreased [None]
  - Blood albumin decreased [None]
  - Red blood cell nucleated morphology present [None]

NARRATIVE: CASE EVENT DATE: 20210813
